FAERS Safety Report 12880206 (Version 1)
Quarter: 2016Q4

REPORT INFORMATION
  Report Type: Spontaneous
  Country: US (occurrence: US)
  Receive Date: 20161025
  Receipt Date: 20161025
  Transmission Date: 20170207
  Serious: Yes (Other)
  Sender: FDA-Public Use
  Company Number: US-PROCTER_AND_GAMBLE-GS16127597

PATIENT

DRUGS (1)
  1. CREST ANTI CAVITY REGULAR [Suspect]
     Active Substance: SODIUM FLUORIDE
     Route: 002

REACTIONS (2)
  - Dental caries [None]
  - Drug ineffective [None]
